FAERS Safety Report 5633874-7 (Version None)
Quarter: 2008Q1

REPORT INFORMATION
  Report Type: 
  Country: None (occurrence: None)
  Receive Date: 20080221
  Receipt Date: 20080219
  Transmission Date: 20080703
  Serious: Yes (Hospitalization)
  Sender: FDA-Public Use
  Company Number: US-BOEHRINGER INGELHEIM GMBH, GERMANY-2008-BP-02437RO

PATIENT
  Age: 64 Year
  Sex: Male
  Weight: 118 kg

DRUGS (9)
  1. FUROSEMIDE [Suspect]
  2. PREDNISONE TAB [Suspect]
  3. MYCOPHENOLATE MOFETIL [Suspect]
  4. CYCLOSPORINE [Suspect]
  5. DILTIAZEM [Suspect]
  6. ASPIRIN [Suspect]
  7. SIMVASTATIN [Suspect]
     Dates: end: 20060801
  8. INSULIN [Suspect]
  9. ANGIOTENSIN RECEPTOR BLOCKER [Suspect]
     Dates: start: 20060701, end: 20060801

REACTIONS (11)
  - ALANINE AMINOTRANSFERASE INCREASED [None]
  - ASPARTATE AMINOTRANSFERASE INCREASED [None]
  - BLOOD CREATINE PHOSPHOKINASE INCREASED [None]
  - BLOOD CREATINE PHOSPHOKINASE MB INCREASED [None]
  - CHROMATURIA [None]
  - DIARRHOEA [None]
  - MYALGIA [None]
  - OEDEMA [None]
  - RENAL FAILURE ACUTE [None]
  - RHABDOMYOLYSIS [None]
  - TRANSPLANT REJECTION [None]
